FAERS Safety Report 8380182-X (Version None)
Quarter: 2012Q2

REPORT INFORMATION
  Report Type: 
  Country: None (occurrence: None)
  Receive Date: 20120523
  Receipt Date: 20120521
  Transmission Date: 20120825
  Serious: Yes (Other)
  Sender: FDA-Public Use
  Company Number: US-PFIZER INC-2012122804

PATIENT
  Sex: Male
  Weight: 88.435 kg

DRUGS (5)
  1. LIPITOR [Suspect]
     Indication: CARDIAC DISORDER
     Dosage: 40 MG, DAILY
     Dates: start: 19960101
  2. LISINOPRIL [Concomitant]
     Indication: HYPERTENSION
     Dosage: 5 MG, DAILY
  3. METOPROLOL [Concomitant]
     Indication: HYPERTENSION
     Dosage: ONE-HALF TABLET OF 25 MG ,2X/DAY
  4. ACETYLSALICYLIC ACID [Concomitant]
     Indication: BLOOD DISORDER
  5. ACETYLSALICYLIC ACID [Concomitant]
     Indication: CARDIAC DISORDER
     Dosage: 325 MG, DAILY

REACTIONS (1)
  - VASCULAR GRAFT [None]
